FAERS Safety Report 4430307-3 (Version None)
Quarter: 2004Q3

REPORT INFORMATION
  Report Type: 
  Country: None (occurrence: None)
  Receive Date: 20040816
  Receipt Date: 20040802
  Transmission Date: 20050211
  Serious: Yes (Death, Hospitalization, Disabling)
  Sender: FDA-Public Use
  Company Number: SP00279

PATIENT
  Age: 64 Year
  Sex: Male
  Weight: 85 kg

DRUGS (5)
  1. COLAZAL [Suspect]
     Indication: COLITIS ULCERATIVE
     Dosage: 750 MG/TID, ORAL
     Route: 048
     Dates: start: 20010101, end: 20040427
  2. MESALAMINE [Suspect]
     Indication: COLITIS ULCERATIVE
     Dosage: 1G/EVERY NIGHT,  RECTAL
     Route: 054
     Dates: start: 20010101, end: 20040429
  3. CO-PHENOTROPE [Concomitant]
  4. PREDNISOLONE [Concomitant]
  5. ATORVASTATIN [Concomitant]

REACTIONS (1)
  - ALVEOLITIS FIBROSING [None]
